FAERS Safety Report 10348499 (Version 1)
Quarter: 2014Q3

REPORT INFORMATION
  Report Type: Spontaneous
  Country: US (occurrence: US)
  Receive Date: 20140729
  Receipt Date: 20140729
  Transmission Date: 20150326
  Serious: No
  Sender: FDA-Public Use
  Company Number: US-ABBVIE-13P-163-1116438-00

PATIENT
  Sex: Male
  Weight: 77.18 kg

DRUGS (4)
  1. FELODIPINE. [Concomitant]
     Active Substance: FELODIPINE
     Indication: PRODUCT USED FOR UNKNOWN INDICATION
  2. LISINOPRIL. [Concomitant]
     Active Substance: LISINOPRIL
     Indication: PRODUCT USED FOR UNKNOWN INDICATION
  3. LEVOTHYROXINE [Concomitant]
     Active Substance: LEVOTHYROXINE
     Indication: PRODUCT USED FOR UNKNOWN INDICATION
  4. NIASPAN [Suspect]
     Active Substance: NIACIN
     Indication: HIGH DENSITY LIPOPROTEIN DECREASED
     Dates: start: 2012

REACTIONS (2)
  - Pruritus genital [Not Recovered/Not Resolved]
  - Genital discomfort [Not Recovered/Not Resolved]

NARRATIVE: CASE EVENT DATE: 2013
